FAERS Safety Report 24920733 (Version 1)
Quarter: 2025Q1

REPORT INFORMATION
  Report Type: Spontaneous
  Country: GB (occurrence: GB)
  Receive Date: 20250204
  Receipt Date: 20250204
  Transmission Date: 20250408
  Serious: Yes (Life-Threatening, Other)
  Sender: ALKEM
  Company Number: None

PATIENT
  Age: 30 Year
  Sex: Male
  Weight: 135 kg

DRUGS (3)
  1. FINASTERIDE [Suspect]
     Active Substance: FINASTERIDE
     Indication: Alopecia
     Route: 065
  2. FINASTERIDE [Suspect]
     Active Substance: FINASTERIDE
     Indication: Depression
  3. SERTRALINE [Concomitant]
     Active Substance: SERTRALINE HYDROCHLORIDE
     Indication: Depression
     Route: 065

REACTIONS (5)
  - Obsessive thoughts [Not Recovered/Not Resolved]
  - Anxiety [Not Recovered/Not Resolved]
  - Depression [Not Recovered/Not Resolved]
  - Suicidal ideation [Recovering/Resolving]
  - Medication error [Unknown]
